FAERS Safety Report 4496663-5 (Version None)
Quarter: 2004Q4

REPORT INFORMATION
  Report Type: 
  Country: None (occurrence: None)
  Receive Date: 20041108
  Receipt Date: 20041108
  Transmission Date: 20050328
  Serious: No
  Sender: FDA-Public Use
  Company Number: None

PATIENT
  Age: 77 Year
  Sex: Male
  Weight: 75 kg

DRUGS (2)
  1. LISINOPRIL [Suspect]
     Indication: DIABETIC NEPHROPATHY
     Dosage: 40 MG DAILY ORAL
     Route: 048
     Dates: start: 20040629, end: 20041006
  2. LISINOPRIL [Suspect]
     Indication: HYPERTENSION
     Dosage: 40 MG DAILY ORAL
     Route: 048
     Dates: start: 20040629, end: 20041006

REACTIONS (1)
  - ANGIONEUROTIC OEDEMA [None]
